FAERS Safety Report 4773875-4 (Version None)
Quarter: 2005Q3

REPORT INFORMATION
  Report Type: 
  Country: None (occurrence: None)
  Receive Date: 20050920
  Receipt Date: 20050518
  Transmission Date: 20060218
  Serious: Yes (Hospitalization)
  Sender: FDA-Public Use
  Company Number: ES-ROCHE-405128

PATIENT
  Age: 53 Year
  Sex: Male

DRUGS (26)
  1. DACLIZUMAB [Suspect]
     Route: 042
     Dates: start: 20050318, end: 20050318
  2. DACLIZUMAB [Suspect]
     Route: 042
     Dates: start: 20050322, end: 20050322
  3. MYCOPHENOLATE MOFETIL [Suspect]
     Route: 042
     Dates: start: 20050318, end: 20050322
  4. MYCOPHENOLATE MOFETIL [Suspect]
     Route: 048
     Dates: start: 20050323
  5. TACROLIMUS [Suspect]
     Dosage: 5MG DOSE: 3MG AND 2MG. DOSE ADJUSTED TO REACH PREDEFINED TARGET LEVELS.
     Route: 048
     Dates: start: 20050322
  6. METHYLPREDNISOLONE [Suspect]
     Dosage: DOSE TAPERED ACCORDING TO LOCAL PROTOCOL.
     Route: 065
     Dates: start: 20050318, end: 20050517
  7. PREDNISONE [Suspect]
     Dosage: CHANGED FROM METHYLPREDNISOLONE DUE TO CMV INFECTION
     Route: 065
     Dates: start: 20050517, end: 20050523
  8. PREDNISONE [Suspect]
     Dosage: DOSE CHANGED DUE TO CMV INFECTION.
     Route: 065
     Dates: start: 20050524
  9. ORFIDAL [Concomitant]
     Indication: INSOMNIA
     Dates: start: 20050319, end: 20050601
  10. FENTANILO [Concomitant]
     Dates: start: 20050319, end: 20050320
  11. PANTOPRAZOLE [Concomitant]
     Indication: PROPHYLAXIS
     Dates: start: 20050319
  12. CIPROFLOXACINO [Concomitant]
     Indication: INFECTION PROPHYLAXIS
     Dates: start: 20050319, end: 20050419
  13. TRIMETHOPRIM/SULFAMETHOXAZOLE DS [Concomitant]
     Indication: ANTIBIOTIC PROPHYLAXIS
     Dosage: DRUG REPORTED AS TRIMETHOPRIM/SULFAMETHOXAZOLE
     Dates: start: 20050319
  14. TEICOPLANIN [Concomitant]
     Indication: ANTIBIOTIC PROPHYLAXIS
     Dates: start: 20050319, end: 20050323
  15. NISTATIN [Concomitant]
     Indication: ANTIFUNGAL PROPHYLAXIS
     Dates: start: 20050319, end: 20050419
  16. NORADRENALINE [Concomitant]
     Dates: start: 20050317, end: 20050318
  17. INSULINE [Concomitant]
     Dosage: STOPPED ON 20 MARCH AND RESTARTED ON 22 MARCH 2005.
     Dates: start: 20050319
  18. CAPOTEN [Concomitant]
     Indication: HYPERTENSION
     Dates: start: 20050320
  19. FLATORIL [Concomitant]
     Indication: ABDOMINAL DISCOMFORT
     Dates: start: 20050322, end: 20050323
  20. VALIUM [Concomitant]
     Indication: SHOULDER PAIN
     Dates: start: 20050324
  21. CALMATEL [Concomitant]
     Indication: SHOULDER PAIN
     Route: 061
     Dates: start: 20050323
  22. ACETAMINOPHEN [Concomitant]
     Indication: SHOULDER PAIN
     Dates: start: 20050327
  23. ADOLONTA [Concomitant]
     Indication: SHOULDER PAIN
     Dates: start: 20050327, end: 20050406
  24. DURAGESIC-100 [Concomitant]
     Indication: SHOULDER PAIN
     Dates: start: 20050329, end: 20050603
  25. URSOCHOL [Concomitant]
     Indication: PROPHYLAXIS
     Dates: start: 20050517
  26. GANCICLOVIR [Concomitant]
     Dates: start: 20050518, end: 20050601

REACTIONS (1)
  - CYTOMEGALOVIRUS INFECTION [None]
